FAERS Safety Report 8860510 (Version 3)
Quarter: 2013Q1

REPORT INFORMATION
  Report Type: Spontaneous
  Country: FR (occurrence: FR)
  Receive Date: 20121025
  Receipt Date: 20130304
  Transmission Date: 20140127
  Serious: Yes (Hospitalization, Other)
  Sender: FDA-Public Use
  Company Number: PHHY2012FR081324

PATIENT
  Age: 74 Year
  Sex: Male
  Weight: 84 kg

DRUGS (18)
  1. TASIGNA [Suspect]
     Indication: CHRONIC MYELOID LEUKAEMIA
     Dosage: 300 MG, BID
     Route: 048
     Dates: start: 20120712, end: 20120913
  2. KARDEGIC [Concomitant]
  3. PRAVASTATIN [Concomitant]
  4. GLICAZIDA [Concomitant]
  5. ADANCOR [Concomitant]
  6. SEVIKAR [Concomitant]
  7. PREVISCAN [Concomitant]
     Dosage: UNK
     Dates: start: 20120910
  8. TRIATEC [Concomitant]
     Dosage: UNK
     Dates: start: 20120910
  9. DIFFU K [Concomitant]
     Dosage: UNK
     Dates: start: 20120910
  10. FLODIL [Concomitant]
  11. PLAVIX [Concomitant]
  12. LOVENOX [Concomitant]
  13. RISORDAN [Concomitant]
  14. LASILIX [Concomitant]
  15. LEVOTHYROX [Concomitant]
  16. KALEORID [Concomitant]
  17. TEMESTA [Concomitant]
  18. ALDACTONE [Concomitant]

REACTIONS (5)
  - Cardiac failure [Recovered/Resolved]
  - Cardiac failure chronic [Recovered/Resolved]
  - Pleural effusion [Recovered/Resolved]
  - Electrocardiogram QT prolonged [Not Recovered/Not Resolved]
  - Arrhythmia [Unknown]
